FAERS Safety Report 10601838 (Version 1)
Quarter: 2014Q4

REPORT INFORMATION
  Report Type: Spontaneous
  Country: BR (occurrence: BR)
  Receive Date: 20141124
  Receipt Date: 20141124
  Transmission Date: 20150529
  Serious: Yes (Other)
  Sender: FDA-Public Use
  Company Number: PHHY2014BR149291

PATIENT
  Age: 4 Year
  Sex: Male

DRUGS (1)
  1. HYDROCORTISONE. [Suspect]
     Active Substance: HYDROCORTISONE
     Indication: PRODUCT USED FOR UNKNOWN INDICATION
     Dosage: 20 MG/KG, QD
     Route: 065

REACTIONS (4)
  - Hypertension [Recovering/Resolving]
  - Partial seizures [Recovered/Resolved]
  - Amaurosis [Unknown]
  - Posterior reversible encephalopathy syndrome [Recovering/Resolving]
